FAERS Safety Report 9259866 (Version 8)
Quarter: 2020Q1

REPORT INFORMATION
  Report Type: Spontaneous
  Country: JP (occurrence: JP)
  Receive Date: 20130429
  Receipt Date: 20200212
  Transmission Date: 20200409
  Serious: Yes (Other)
  Sender: FDA-Public Use
  Company Number: JP-ROCHE-1217429

PATIENT
  Age: 67 Year
  Sex: Female
  Weight: 68 kg

DRUGS (5)
  1. TAXOL [Concomitant]
     Active Substance: PACLITAXEL
     Route: 041
  2. AVASTIN [Suspect]
     Active Substance: BEVACIZUMAB
     Indication: BREAST CANCER
     Dosage: COMPLETED TREATMENT CYCLE 9.
     Route: 041
     Dates: start: 20120807, end: 20130425
  3. ZOMETA [Concomitant]
     Active Substance: ZOLEDRONIC ACID
     Indication: BREAST CANCER
     Dosage: DOSAGE IS UNCERTAIN.
     Route: 065
     Dates: start: 20120807
  4. AVASTIN [Suspect]
     Active Substance: BEVACIZUMAB
     Route: 041
  5. TAXOL [Concomitant]
     Active Substance: PACLITAXEL
     Indication: BREAST CANCER
     Dosage: COMPLETED TREATMENT CYCLE NUMBER: 9
     Route: 041
     Dates: start: 20120807

REACTIONS (4)
  - Aortic dissection [Unknown]
  - Hypertension [Unknown]
  - Aortic dissection [Recovered/Resolved]
  - Proteinuria [Recovering/Resolving]

NARRATIVE: CASE EVENT DATE: 201212
